FAERS Safety Report 7312886-1 (Version None)
Quarter: 2011Q1

REPORT INFORMATION
  Report Type: 
  Country: None (occurrence: None)
  Receive Date: 20110224
  Receipt Date: 20110211
  Transmission Date: 20110831
  Serious: Yes (Hospitalization)
  Sender: FDA-Public Use
  Company Number: US-ROCHE-739277

PATIENT
  Sex: Female
  Weight: 71 kg

DRUGS (11)
  1. ASPIRIN [Concomitant]
     Dates: start: 20080101
  2. TRASTUZUMAB [Suspect]
     Dosage: FORM: VIALS. DOSE LEVEL: 6 UNITS: AUC
     Route: 042
     Dates: start: 20110126
  3. SINGULAIR [Concomitant]
     Dates: start: 20101006
  4. ATENOLOL [Concomitant]
     Dates: start: 20101006
  5. LEXAPRO [Concomitant]
     Dates: start: 20100306
  6. METROGEL [Concomitant]
     Dosage: DAILY
     Dates: start: 20000101
  7. BEVACIZUMAB [Suspect]
     Dosage: FORM: VIALS DOSE LEVEL: 15 UNITS: MG/KG DATE OF LAST DOSE PRIOR TO SAE: 17 SEPTEMBER 2010. DOSE HELD
     Route: 042
     Dates: start: 20100806, end: 20101008
  8. TRASTUZUMAB [Suspect]
     Dosage: FORM: VIALS. DOSE LEVEL: 6 UNITS: AUC DATE OF LAST DOSE PRIOR TO SAE: 17 SEPTEMBER 2010. DOSE HELD
     Route: 042
     Dates: start: 20100806, end: 20101008
  9. DOCETAXEL [Suspect]
     Dosage: DOSE LEVEL: 75 UNITS: MG/M2 DOSAGE FORM: VIALS DOSE HELD
     Route: 042
     Dates: start: 20100806, end: 20101008
  10. CARBOPLATIN [Suspect]
     Dosage: DOSE LEVEL: 6 UNITS: AUC FORM: VIALS DOSE HELD
     Route: 042
     Dates: start: 20100806, end: 20101008
  11. OMEPRAZOLE [Concomitant]
     Dates: start: 20100901

REACTIONS (1)
  - GASTROINTESTINAL HAEMORRHAGE [None]
